FAERS Safety Report 9523727 (Version 1)
Quarter: 2013Q3

REPORT INFORMATION
  Report Type: Spontaneous
  Country: CN (occurrence: CN)
  Receive Date: 20130914
  Receipt Date: 20130914
  Transmission Date: 20140515
  Serious: Yes (Other)
  Sender: FDA-Public Use
  Company Number: CN-ROCHE-1272734

PATIENT
  Sex: Female
  Weight: 50 kg

DRUGS (1)
  1. PEGASYS [Suspect]
     Indication: HEPATIC CANCER
     Route: 058
     Dates: start: 20120925, end: 20121120

REACTIONS (1)
  - White blood cell count decreased [Recovering/Resolving]
